FAERS Safety Report 25122085 (Version 9)
Quarter: 2025Q3

REPORT INFORMATION
  Report Type: Report from Study
  Country: US (occurrence: US)
  Receive Date: 20250326
  Receipt Date: 20250923
  Transmission Date: 20251020
  Serious: Yes (Hospitalization, Other)
  Sender: UCB
  Company Number: US-UCBSA-2025005397

PATIENT
  Sex: Female

DRUGS (13)
  1. FINTEPLA [Suspect]
     Active Substance: FENFLURAMINE
     Indication: Severe myoclonic epilepsy of infancy
     Dates: start: 20250113
  2. FINTEPLA [Suspect]
     Active Substance: FENFLURAMINE
     Dosage: 0.2 MILLIGRAM, 2X/DAY (BID)
     Dates: start: 20250128
  3. FINTEPLA [Suspect]
     Active Substance: FENFLURAMINE
     Dosage: 0.5 MILLIGRAM, 2X/DAY (BID)
     Dates: start: 2025
  4. FINTEPLA [Suspect]
     Active Substance: FENFLURAMINE
     Dosage: 0.8 MILLIGRAM, 2X/DAY (BID)
     Dates: start: 2025
  5. FINTEPLA [Suspect]
     Active Substance: FENFLURAMINE
     Dosage: 1 MILLIGRAM, 2X/DAY (BID)
     Dates: start: 2025
  6. FINTEPLA [Suspect]
     Active Substance: FENFLURAMINE
     Dosage: 1 MILLILITER, 2X/DAY (BID)
     Dates: start: 2025
  7. FINTEPLA [Suspect]
     Active Substance: FENFLURAMINE
     Dosage: 1 MILLILITER, 2X/DAY (BID)
     Dates: start: 2025
  8. FINTEPLA [Suspect]
     Active Substance: FENFLURAMINE
     Dosage: 1.5 MILLILITER, 2X/DAY (BID)
     Dates: start: 2025
  9. FINTEPLA [Suspect]
     Active Substance: FENFLURAMINE
     Dosage: 1.5 MILLILITER, 2X/DAY (BID) 3.3 MG
     Route: 048
  10. FINTEPLA [Suspect]
     Active Substance: FENFLURAMINE
     Dosage: 3.3 MILLIGRAM, 2X/DAY (BID)
  11. FINTEPLA [Suspect]
     Active Substance: FENFLURAMINE
     Dosage: 1.5 MILLILITER, 2X/DAY (BID) 3.3 MG
     Dates: start: 2025
  12. VALPROIC ACID [Concomitant]
     Active Substance: VALPROIC ACID
     Indication: Product used for unknown indication
  13. CLONAZEPAM [Concomitant]
     Active Substance: CLONAZEPAM
     Indication: Product used for unknown indication

REACTIONS (10)
  - Pneumonia influenzal [Recovered/Resolved]
  - Seizure [Recovered/Resolved]
  - Hospitalisation [Recovered/Resolved]
  - Mood altered [Recovered/Resolved]
  - Ear infection [Not Recovered/Not Resolved]
  - Nasopharyngitis [Not Recovered/Not Resolved]
  - Insomnia [Recovered/Resolved]
  - Weight decreased [Not Recovered/Not Resolved]
  - Frustration tolerance decreased [Not Recovered/Not Resolved]
  - Off label use [Unknown]

NARRATIVE: CASE EVENT DATE: 20250101
